FAERS Safety Report 4455582-0 (Version None)
Quarter: 2004Q3

REPORT INFORMATION
  Report Type: 
  Country: None (occurrence: None)
  Receive Date: 20040922
  Receipt Date: 20040913
  Transmission Date: 20050211
  Serious: Yes (Hospitalization)
  Sender: FDA-Public Use
  Company Number: US-JNJFOC-20040604642

PATIENT
  Sex: Female

DRUGS (11)
  1. DURAGESIC [Suspect]
     Route: 062
     Dates: start: 20030601
  2. DURAGESIC [Suspect]
     Route: 062
     Dates: start: 20030601
  3. DURAGESIC [Suspect]
     Route: 062
     Dates: start: 20030601
  4. DURAGESIC [Suspect]
     Route: 062
     Dates: start: 20030601
  5. DURAGESIC [Suspect]
     Route: 062
     Dates: start: 20030601
  6. BACOFONE [Concomitant]
     Dates: start: 19980101
  7. ATENOLOL [Concomitant]
     Dates: start: 19930101
  8. NEURONTIN [Concomitant]
     Dates: start: 19990101
  9. CELEBREX [Concomitant]
     Indication: ARTHRITIS
  10. WATERPILL [Concomitant]
     Dates: start: 20010101
  11. CLONIDINE HCL [Concomitant]
     Dates: start: 20020101

REACTIONS (9)
  - CIRCULATORY COLLAPSE [None]
  - CONFUSIONAL STATE [None]
  - DYSSTASIA [None]
  - INSOMNIA [None]
  - IRRITABILITY [None]
  - SENSATION OF HEAVINESS [None]
  - SOMNOLENCE [None]
  - THERAPEUTIC RESPONSE DECREASED [None]
  - TREMOR [None]
